FAERS Safety Report 18965496 (Version 2)
Quarter: 2021Q2

REPORT INFORMATION
  Report Type: Spontaneous
  Country: FR (occurrence: FR)
  Receive Date: 20210304
  Receipt Date: 20210413
  Transmission Date: 20210717
  Serious: No
  Sender: FDA-Public Use
  Company Number: FR-AMGEN-FRASP2021029478

PATIENT
  Age: 16 Year
  Sex: Female

DRUGS (1)
  1. NEUPOGEN [Suspect]
     Active Substance: FILGRASTIM
     Indication: PAROXYSMAL NOCTURNAL HAEMOGLOBINURIA
     Dosage: 5 MICROGRAM/KILOGRAM, QD
     Route: 058

REACTIONS (2)
  - Viral upper respiratory tract infection [Unknown]
  - Off label use [Unknown]
